FAERS Safety Report 5093033-6 (Version None)
Quarter: 2006Q3

REPORT INFORMATION
  Report Type: 
  Country: None (occurrence: None)
  Receive Date: 20060728
  Receipt Date: 20060426
  Transmission Date: 20061208
  Serious: Yes (Hospitalization)
  Sender: FDA-Public Use
  Company Number: 252720

PATIENT
  Sex: Female

DRUGS (1)
  1. LEVEMIR FLEXPEN(INSULIN DETERMIR) SOLUTION FOR INJECTION,.0024MOL/L [Suspect]
     Indication: DIABETES MELLITUS
     Dosage: 25 LU, QD, SUBCUTANEOUS
     Route: 058
     Dates: end: 20060401

REACTIONS (1)
  - DIABETIC KETOACIDOSIS [None]
